FAERS Safety Report 6007740-1 (Version None)
Quarter: 2008Q4

REPORT INFORMATION
  Report Type: 
  Country: None (occurrence: None)
  Receive Date: 20081217
  Receipt Date: 20080527
  Transmission Date: 20090506
  Serious: No
  Sender: FDA-Public Use
  Company Number: US-ASTRAZENECA-2008UW10690

PATIENT
  Age: 62 Year
  Sex: Female

DRUGS (4)
  1. CRESTOR [Suspect]
     Indication: HYPERCHOLESTEROLAEMIA
     Route: 048
     Dates: start: 20070101
  2. AVANDIA [Concomitant]
  3. INSULIN [Concomitant]
  4. LISINOPRIL [Concomitant]
     Route: 048

REACTIONS (1)
  - PARAESTHESIA [None]
